FAERS Safety Report 19266196 (Version 1)
Quarter: 2021Q2

REPORT INFORMATION
  Report Type: Report from Study
  Country: JP (occurrence: JP)
  Receive Date: 20210518
  Receipt Date: 20210518
  Transmission Date: 20210717
  Serious: Yes (Other)
  Sender: FDA-Public Use
  Company Number: JP-CELLTRION INC.-2020JP024432

PATIENT

DRUGS (23)
  1. CT?P6 [Suspect]
     Active Substance: INVESTIGATIONAL BIOSIMILARS
     Dosage: 270 MG, QD
     Route: 041
     Dates: start: 20190523, end: 20190523
  2. CT?P6 [Suspect]
     Active Substance: INVESTIGATIONAL BIOSIMILARS
     Dosage: 270 MG, QD
     Route: 041
     Dates: start: 20190620, end: 20190620
  3. CISPLATIN. [Suspect]
     Active Substance: CISPLATIN
     Dosage: 80 MILLIGRAM, QD
     Route: 041
     Dates: start: 20190308, end: 20190308
  4. CISPLATIN. [Suspect]
     Active Substance: CISPLATIN
     Dosage: 80 MILLIGRAM, QD
     Route: 041
     Dates: start: 20190426, end: 20190426
  5. TEGAFUR GIMERACIL AND OTERACIL POTASSIUM [Suspect]
     Active Substance: GIMERACIL\OTERACIL\TEGAFUR
     Dosage: 100 MG, QD
     Route: 048
     Dates: start: 20190131, end: 20190214
  6. CT?P6 [Suspect]
     Active Substance: INVESTIGATIONAL BIOSIMILARS
     Dosage: 270 MG, QD
     Route: 041
     Dates: start: 20190425, end: 20190425
  7. CISPLATIN. [Suspect]
     Active Substance: CISPLATIN
     Dosage: 80 MILLIGRAM, QD
     Route: 041
     Dates: start: 20190621, end: 20190621
  8. CT?P6 [Suspect]
     Active Substance: INVESTIGATIONAL BIOSIMILARS
     Indication: HER2 POSITIVE GASTRIC CANCER
     Dosage: 360 MG, QD
     Route: 041
     Dates: start: 20190110, end: 20190110
  9. TEGAFUR GIMERACIL AND OTERACIL POTASSIUM [Suspect]
     Active Substance: GIMERACIL\OTERACIL\TEGAFUR
     Dosage: 100 MG, QD
     Route: 048
     Dates: start: 20190307, end: 20190321
  10. CISPLATIN. [Suspect]
     Active Substance: CISPLATIN
     Dosage: 80 MILLIGRAM, QD
     Route: 041
     Dates: start: 20190524, end: 20190524
  11. CISPLATIN. [Suspect]
     Active Substance: CISPLATIN
     Dosage: 80 MILLIGRAM, QD
     Route: 041
     Dates: start: 20190201, end: 20190201
  12. TEGAFUR GIMERACIL AND OTERACIL POTASSIUM [Suspect]
     Active Substance: GIMERACIL\OTERACIL\TEGAFUR
     Indication: HER2 POSITIVE GASTRIC CANCER
     Dosage: 100 MG, QD
     Route: 048
     Dates: start: 20190110, end: 20190124
  13. TEGAFUR GIMERACIL AND OTERACIL POTASSIUM [Suspect]
     Active Substance: GIMERACIL\OTERACIL\TEGAFUR
     Dosage: 100 MG, QD
     Route: 048
     Dates: start: 20190425, end: 20190509
  14. TEGAFUR GIMERACIL AND OTERACIL POTASSIUM [Suspect]
     Active Substance: GIMERACIL\OTERACIL\TEGAFUR
     Dosage: 80 MG, QD
     Route: 048
     Dates: start: 20190620, end: 20190704
  15. MANNITOL. [Concomitant]
     Active Substance: MANNITOL
     Indication: POLYURIA
     Dosage: UNK
     Dates: start: 20190111, end: 20190621
  16. DEXART [Concomitant]
     Active Substance: DEXAMETHASONE SODIUM PHOSPHATE
     Indication: PROPHYLAXIS OF NAUSEA AND VOMITING
     Dosage: UNK
     Dates: start: 20190110, end: 20190623
  17. CT?P6 [Suspect]
     Active Substance: INVESTIGATIONAL BIOSIMILARS
     Dosage: 270 MG, QD
     Route: 041
     Dates: start: 20190131, end: 20190131
  18. CT?P6 [Suspect]
     Active Substance: INVESTIGATIONAL BIOSIMILARS
     Dosage: 270 MG, QD
     Route: 041
     Dates: start: 20190307, end: 20190307
  19. CISPLATIN. [Suspect]
     Active Substance: CISPLATIN
     Indication: HER2 POSITIVE GASTRIC CANCER
     Dosage: 80 MILLIGRAM, QD
     Route: 041
     Dates: start: 20190111, end: 20190111
  20. TEGAFUR GIMERACIL AND OTERACIL POTASSIUM [Suspect]
     Active Substance: GIMERACIL\OTERACIL\TEGAFUR
     Dosage: 80 MG, QD
     Route: 048
     Dates: start: 20190523, end: 20190606
  21. PRIMPERAN [Concomitant]
     Active Substance: METOCLOPRAMIDE HYDROCHLORIDE
     Indication: PROPHYLAXIS OF NAUSEA AND VOMITING
     Dosage: UNK
     Dates: start: 20190110, end: 20190621
  22. ALOXI [Concomitant]
     Active Substance: PALONOSETRON HYDROCHLORIDE
     Indication: PROPHYLAXIS OF NAUSEA AND VOMITING
     Dosage: UNK
     Dates: start: 20190110, end: 20190121
  23. TAKECAB [Concomitant]
     Active Substance: VONOPRAZAN FUMARATE
     Indication: HER2 POSITIVE GASTRIC CANCER
     Dosage: UNK

REACTIONS (5)
  - Condition aggravated [Unknown]
  - Decreased appetite [Recovered/Resolved]
  - Off label use [Unknown]
  - Malaise [Recovering/Resolving]
  - Ejection fraction decreased [Unknown]

NARRATIVE: CASE EVENT DATE: 20190201
